FAERS Safety Report 9350861 (Version 2)
Quarter: 2013Q3

REPORT INFORMATION
  Report Type: Spontaneous
  Country: DE (occurrence: DE)
  Receive Date: 20130617
  Receipt Date: 20130919
  Transmission Date: 20140515
  Serious: Yes (Hospitalization, Other)
  Sender: FDA-Public Use
  Company Number: DE-ROCHE-1237565

PATIENT
  Sex: 0

DRUGS (2)
  1. LUCENTIS [Suspect]
     Indication: MACULAR OEDEMA
     Route: 050
     Dates: start: 20130403, end: 20130403
  2. LUCENTIS [Suspect]
     Indication: RETINAL VEIN OCCLUSION

REACTIONS (1)
  - Pulmonary embolism [Recovering/Resolving]
